FAERS Safety Report 8967262 (Version 1)
Quarter: 2012Q4

REPORT INFORMATION
  Report Type: Report from Study
  Country: CA (occurrence: CA)
  Receive Date: 20121217
  Receipt Date: 20121217
  Transmission Date: 20130627
  Serious: Yes (Other)
  Sender: FDA-Public Use
  Company Number: CA-JNJFOC-20121202971

PATIENT
  Age: 29 None
  Sex: Male
  Weight: 88 kg

DRUGS (4)
  1. REMICADE [Suspect]
     Indication: COLITIS
     Route: 042
     Dates: start: 201210
  2. REMICADE [Suspect]
     Indication: COLITIS
     Route: 042
  3. REMICADE [Suspect]
     Indication: CROHN^S DISEASE
     Route: 042
  4. REMICADE [Suspect]
     Indication: CROHN^S DISEASE
     Route: 042
     Dates: start: 201210

REACTIONS (6)
  - Weight increased [Unknown]
  - Pregnancy of partner [Unknown]
  - Pain [Unknown]
  - Discomfort [Unknown]
  - Abdominal pain upper [Unknown]
  - Malaise [Unknown]
